FAERS Safety Report 5104206-8 (Version None)
Quarter: 2006Q3

REPORT INFORMATION
  Report Type: 
  Country: None (occurrence: None)
  Receive Date: 20060911
  Receipt Date: 20060829
  Transmission Date: 20061208
  Serious: Yes (Other)
  Sender: FDA-Public Use
  Company Number: ST-2006-009236

PATIENT
  Age: 65 Year
  Sex: Female

DRUGS (5)
  1. OLMESARTAN MEDOXOMIL [Suspect]
     Indication: HYPERTENSION
     Dosage: 20 MG QD PO
     Route: 048
     Dates: start: 20060720, end: 20060728
  2. DAONIL [Concomitant]
  3. BASEN [Concomitant]
  4. CRESTOR [Concomitant]
  5. PURSENNID /SCH/ [Concomitant]

REACTIONS (1)
  - CARDIAC FAILURE CONGESTIVE [None]
